FAERS Safety Report 10355036 (Version 1)
Quarter: 2014Q3

REPORT INFORMATION
  Report Type: Spontaneous
  Country: US (occurrence: None)
  Receive Date: 20140729
  Receipt Date: 20140729
  Transmission Date: 20150326
  Serious: Yes (Other)
  Sender: FDA-Public Use
  Company Number: None

PATIENT
  Age: 52 Year
  Sex: Female
  Weight: 90.72 kg

DRUGS (1)
  1. NICOTINE TRANSDERMAL SYSTEM [Suspect]
     Active Substance: NICOTINE
     Indication: SMOKING CESSATION THERAPY
     Route: 061
     Dates: start: 20140717, end: 20140720

REACTIONS (4)
  - Hand fracture [None]
  - Abnormal dreams [None]
  - Laceration [None]
  - Joint injury [None]

NARRATIVE: CASE EVENT DATE: 20140720
